FAERS Safety Report 14529473 (Version 2)
Quarter: 2018Q1

REPORT INFORMATION
  Report Type: Spontaneous
  Country: IT (occurrence: IT)
  Receive Date: 20180214
  Receipt Date: 20180222
  Transmission Date: 20180509
  Serious: Yes (Other)
  Sender: FDA-Public Use
  Company Number: GB-INCYTE CORPORATION-2018IN001208

PATIENT

DRUGS (4)
  1. COUMADIN [Concomitant]
     Active Substance: WARFARIN SODIUM
     Indication: HAEMATURIA
     Route: 065
  2. ASA [Concomitant]
     Active Substance: ASPIRIN
     Indication: MYELOPROLIFERATIVE NEOPLASM
     Dosage: 100 MG, QD
     Route: 065
  3. JAKAVI [Suspect]
     Active Substance: RUXOLITINIB
     Indication: MYELOPROLIFERATIVE NEOPLASM
     Dosage: 15 MG, BID
     Route: 065
     Dates: start: 200807
  4. COUMADIN [Concomitant]
     Active Substance: WARFARIN SODIUM
     Indication: EPISTAXIS

REACTIONS (8)
  - Hepatomegaly [Unknown]
  - Procedural haemorrhage [Unknown]
  - Cytopenia [Unknown]
  - Leukocytosis [Unknown]
  - Thrombosis [Unknown]
  - Thrombocytosis [Unknown]
  - Subdiaphragmatic abscess [Unknown]
  - Blast cell count increased [Unknown]
